FAERS Safety Report 16771864 (Version 2)
Quarter: 2020Q1

REPORT INFORMATION
  Report Type: Spontaneous
  Country: FR (occurrence: FR)
  Receive Date: 20190904
  Receipt Date: 20200131
  Transmission Date: 20200409
  Serious: Yes (Other)
  Sender: FDA-Public Use
  Company Number: FR-MYLANLABS-2019M1082369

PATIENT
  Age: 36 Year
  Sex: Male

DRUGS (2)
  1. TENOFOVIR [Suspect]
     Active Substance: TENOFOVIR
     Indication: PROPHYLAXIS AGAINST HIV INFECTION
     Dosage: 245 MILLIGRAM
     Route: 048
     Dates: start: 20180627, end: 20190102
  2. EMTRICITABINE [Suspect]
     Active Substance: EMTRICITABINE
     Indication: PROPHYLAXIS AGAINST HIV INFECTION
     Dosage: 200 MILLIGRAM
     Route: 048
     Dates: start: 20180627, end: 20190102

REACTIONS (1)
  - HIV test positive [Not Recovered/Not Resolved]

NARRATIVE: CASE EVENT DATE: 20190227
